FAERS Safety Report 20509391 (Version 1)
Quarter: 2022Q1

REPORT INFORMATION
  Report Type: Spontaneous
  Country: AR (occurrence: AR)
  Receive Date: 20220223
  Receipt Date: 20220223
  Transmission Date: 20220423
  Serious: Yes (Life-Threatening, Hospitalization)
  Sender: FDA-Public Use
  Company Number: AR-STRIDES ARCOLAB LIMITED-2022SP001611

PATIENT
  Age: 14 Year
  Sex: Female

DRUGS (1)
  1. AMLODIPINE [Suspect]
     Active Substance: AMLODIPINE BESYLATE
     Indication: Product used for unknown indication
     Dosage: 10 MILLIGRAM UNKNOWN (30 IMMEDIATE RELEASE TABLETS)
     Route: 048

REACTIONS (4)
  - Haemodynamic instability [Recovered/Resolved]
  - Acute pulmonary oedema [Recovered/Resolved]
  - Suicide attempt [Unknown]
  - Intentional overdose [Unknown]
